FAERS Safety Report 9042090 (Version 1)
Quarter: 2013Q1

REPORT INFORMATION
  Report Type: Report from Study
  Country: US (occurrence: US)
  Receive Date: 20130129
  Receipt Date: 20130129
  Transmission Date: 20140127
  Serious: No
  Sender: FDA-Public Use
  Company Number: US-ABBOTT-12P-163-0906424-00

PATIENT
  Age: 57 Year
  Sex: Female
  Weight: 86.26 kg

DRUGS (13)
  1. HUMIRA 40 MG/ 0.8 ML PRE-FILLED SYRINGE [Suspect]
     Indication: RHEUMATOID ARTHRITIS
     Dates: start: 2010
  2. METHOTREXATE [Concomitant]
     Indication: RHEUMATOID ARTHRITIS
  3. MORPHINE [Concomitant]
     Indication: PAIN
  4. NIFEDICAL XL [Concomitant]
     Indication: HYPERTENSION
  5. PREDNISONE [Concomitant]
     Indication: RHEUMATOID ARTHRITIS
  6. FOLIC ACID [Concomitant]
     Indication: VITAMIN SUPPLEMENTATION
  7. SIMVASTATIN [Concomitant]
     Indication: BLOOD CHOLESTEROL INCREASED
  8. VITAMIN D [Concomitant]
     Indication: VITAMIN D DEFICIENCY
  9. OMEGA 3 [Concomitant]
     Indication: VITAMIN SUPPLEMENTATION
  10. CYMBALTA [Concomitant]
     Indication: DEPRESSION
  11. PROAIR [Concomitant]
     Indication: ASTHMA
  12. ADVAIR [Concomitant]
     Indication: ASTHMA
  13. CORTISONE [Concomitant]
     Indication: RHEUMATOID ARTHRITIS

REACTIONS (4)
  - Pain [Not Recovered/Not Resolved]
  - Insomnia [Recovered/Resolved]
  - Pain [Not Recovered/Not Resolved]
  - Pain [Not Recovered/Not Resolved]
